FAERS Safety Report 16299669 (Version 2)
Quarter: 2020Q4

REPORT INFORMATION
  Report Type: Spontaneous
  Country: US (occurrence: US)
  Receive Date: 20190510
  Receipt Date: 20201027
  Transmission Date: 20210113
  Serious: Yes (Other)
  Sender: FDA-Public Use
  Company Number: US-ASTRAZENECA-2019SE63043

PATIENT
  Age: 62 Year
  Sex: Male
  Weight: 91.2 kg

DRUGS (45)
  1. PRILOSEC [Suspect]
     Active Substance: OMEPRAZOLE MAGNESIUM
     Indication: GASTROOESOPHAGEAL REFLUX DISEASE
     Route: 048
     Dates: start: 20060101, end: 20170101
  2. METRONIDAZOLE. [Concomitant]
     Active Substance: METRONIDAZOLE
     Dates: start: 20130710
  3. CARVEDILOL. [Concomitant]
     Active Substance: CARVEDILOL
     Dates: start: 20170221
  4. ZANTAC [Concomitant]
     Active Substance: RANITIDINE HYDROCHLORIDE
     Dosage: GENERIC
     Dates: start: 20060407
  5. TUMS [Concomitant]
     Active Substance: CALCIUM CARBONATE
     Dosage: MID 1990S AS NEEDED
  6. HEPARIN [Concomitant]
     Active Substance: HEPARIN SODIUM
     Dates: start: 20030127
  7. LYRICA [Concomitant]
     Active Substance: PREGABALIN
     Dates: start: 20120103
  8. KLOR-CON [Concomitant]
     Active Substance: POTASSIUM CHLORIDE
     Dates: start: 20170221
  9. CRESTOR [Concomitant]
     Active Substance: ROSUVASTATIN CALCIUM
     Indication: BLOOD CHOLESTEROL INCREASED
     Dates: start: 20120112, end: 20140707
  10. TOBRAMYCIN. [Concomitant]
     Active Substance: TOBRAMYCIN
     Dates: start: 20140830
  11. VITAMIN D3 [Concomitant]
     Active Substance: CHOLECALCIFEROL
  12. NIACIN. [Concomitant]
     Active Substance: NIACIN
     Dates: start: 20030127
  13. UNIVASC [Concomitant]
     Active Substance: MOEXIPRIL HYDROCHLORIDE
  14. RELION/NOVO [Concomitant]
     Dates: start: 20030121
  15. PRILOSEC [Suspect]
     Active Substance: OMEPRAZOLE MAGNESIUM
     Indication: GASTROOESOPHAGEAL REFLUX DISEASE
     Dosage: GENERIC
     Route: 065
     Dates: start: 20150807
  16. TRAMADOL. [Concomitant]
     Active Substance: TRAMADOL
     Indication: PAIN
     Dates: start: 20120112, end: 20120229
  17. VITAMIN B COMPLEX [Concomitant]
     Active Substance: CYANOCOBALAMIN\DEXPANTHENOL\NIACINAMIDE\PYRIDOXINE HYDROCHLORIDE\RIBOFLAVIN 5^-PHOSPHATE SODIUM\THIAMINE HYDROCHLORIDE\VITAMIN B COMPLEX
     Indication: VITAMIN B COMPLEX DEFICIENCY
     Dates: start: 2016
  18. ALPRAZOLAM. [Concomitant]
     Active Substance: ALPRAZOLAM
     Dates: start: 20130710
  19. COZAAR [Concomitant]
     Active Substance: LOSARTAN POTASSIUM
  20. BENADRYL [Concomitant]
     Active Substance: DIPHENHYDRAMINE HYDROCHLORIDE
  21. ELIDEL [Concomitant]
     Active Substance: PIMECROLIMUS
     Dates: start: 20030121
  22. DULOXETINE. [Concomitant]
     Active Substance: DULOXETINE
     Dates: start: 20170214
  23. PRILOSEC [Suspect]
     Active Substance: OMEPRAZOLE MAGNESIUM
     Indication: GASTROOESOPHAGEAL REFLUX DISEASE
     Route: 048
     Dates: start: 200601, end: 201701
  24. PRILOSEC [Suspect]
     Active Substance: OMEPRAZOLE MAGNESIUM
     Indication: GASTROOESOPHAGEAL REFLUX DISEASE
     Dosage: GENERIC DR CAPSULE
     Route: 065
     Dates: start: 20161228
  25. PREVACID [Suspect]
     Active Substance: LANSOPRAZOLE
     Indication: GASTROOESOPHAGEAL REFLUX DISEASE
     Route: 065
     Dates: start: 20030127, end: 20070920
  26. LISINOPRIL. [Concomitant]
     Active Substance: LISINOPRIL
     Indication: HYPERTENSION
     Dates: start: 20120316, end: 20140827
  27. ALKA SETEZER [Concomitant]
     Dosage: AS NEEDED
     Dates: start: 2012
  28. VITAMIN E [Concomitant]
     Active Substance: .ALPHA.-TOCOPHEROL
     Dates: start: 20030127
  29. AQUAPHOR [Concomitant]
     Active Substance: PETROLATUM
     Dates: start: 20030127
  30. TORSEMIDE. [Concomitant]
     Active Substance: TORSEMIDE
     Dates: start: 20170221
  31. PREVACID [Suspect]
     Active Substance: LANSOPRAZOLE
     Indication: GASTROOESOPHAGEAL REFLUX DISEASE
     Dosage: GENERIC
     Route: 065
     Dates: start: 20120302, end: 20140905
  32. LEVEMIR [Concomitant]
     Active Substance: INSULIN DETEMIR
     Indication: BLOOD INSULIN
     Dates: start: 20120112, end: 20140903
  33. TUMS [Concomitant]
     Active Substance: CALCIUM CARBONATE
     Dosage: CALCIUM 500MG
     Dates: start: 2016
  34. ALKA SETEZER [Concomitant]
     Dosage: MID 1990S AS NEEDED
  35. LISINOPRIL AND HYDROCHLOROTHIAZIDE [Concomitant]
     Active Substance: HYDROCHLOROTHIAZIDE\LISINOPRIL
     Dates: start: 20120823
  36. HYDROCHLOROTHIAZIDE. [Concomitant]
     Active Substance: HYDROCHLOROTHIAZIDE
     Dates: start: 20121003
  37. CLINDAMYCIN. [Concomitant]
     Active Substance: CLINDAMYCIN
     Dates: start: 20160211
  38. EXCEDRIN [Concomitant]
     Active Substance: ACETAMINOPHEN\ASPIRIN\CAFFEINE
  39. ZANTAC [Concomitant]
     Active Substance: RANITIDINE HYDROCHLORIDE
     Dates: start: 2003
  40. TUMS [Concomitant]
     Active Substance: CALCIUM CARBONATE
     Dosage: AS NEEDED
     Dates: start: 2012
  41. NOVOLOG [Concomitant]
     Active Substance: INSULIN ASPART
     Dates: start: 20120511
  42. TEGRETOL [Concomitant]
     Active Substance: CARBAMAZEPINE
     Dates: start: 200210
  43. PREDNISONE. [Concomitant]
     Active Substance: PREDNISONE
     Dates: start: 20030130
  44. TRIAMCINOLONE [Concomitant]
     Active Substance: TRIAMCINOLONE
     Dates: start: 20170219
  45. GLIPIZIDE. [Concomitant]
     Active Substance: GLIPIZIDE
     Dates: start: 20160806

REACTIONS (2)
  - Chronic kidney disease [Not Recovered/Not Resolved]
  - Gastrooesophageal reflux disease [Not Recovered/Not Resolved]

NARRATIVE: CASE EVENT DATE: 2010
